FAERS Safety Report 23387136 (Version 35)
Quarter: 2025Q2

REPORT INFORMATION
  Report Type: Spontaneous
  Country: GB (occurrence: GB)
  Receive Date: 20240110
  Receipt Date: 20250609
  Transmission Date: 20250717
  Serious: Yes (Hospitalization, Other)
  Sender: NOVARTIS
  Company Number: GB-SANDOZ-SDZ2023GB053012

PATIENT
  Age: 54 Year
  Sex: Female
  Weight: 71 kg

DRUGS (99)
  1. SECUKINUMAB [Suspect]
     Active Substance: SECUKINUMAB
     Indication: Product used for unknown indication
     Route: 058
  2. SECUKINUMAB [Suspect]
     Active Substance: SECUKINUMAB
     Route: 065
  3. SECUKINUMAB [Suspect]
     Active Substance: SECUKINUMAB
     Route: 065
  4. SECUKINUMAB [Suspect]
     Active Substance: SECUKINUMAB
     Route: 058
  5. SECUKINUMAB [Suspect]
     Active Substance: SECUKINUMAB
     Route: 058
  6. SECUKINUMAB [Suspect]
     Active Substance: SECUKINUMAB
     Route: 058
  7. SECUKINUMAB [Suspect]
     Active Substance: SECUKINUMAB
     Route: 065
  8. SECUKINUMAB [Suspect]
     Active Substance: SECUKINUMAB
     Route: 065
  9. SECUKINUMAB [Suspect]
     Active Substance: SECUKINUMAB
     Route: 065
  10. SECUKINUMAB [Suspect]
     Active Substance: SECUKINUMAB
     Route: 058
  11. SECUKINUMAB [Suspect]
     Active Substance: SECUKINUMAB
     Route: 058
  12. SECUKINUMAB [Suspect]
     Active Substance: SECUKINUMAB
     Route: 058
  13. SECUKINUMAB [Suspect]
     Active Substance: SECUKINUMAB
     Route: 058
  14. SECUKINUMAB [Suspect]
     Active Substance: SECUKINUMAB
     Route: 058
  15. SECUKINUMAB [Suspect]
     Active Substance: SECUKINUMAB
     Route: 065
  16. SECUKINUMAB [Suspect]
     Active Substance: SECUKINUMAB
     Route: 058
  17. SECUKINUMAB [Suspect]
     Active Substance: SECUKINUMAB
     Route: 058
  18. SECUKINUMAB [Suspect]
     Active Substance: SECUKINUMAB
     Route: 058
  19. SECUKINUMAB [Suspect]
     Active Substance: SECUKINUMAB
     Route: 058
  20. SECUKINUMAB [Suspect]
     Active Substance: SECUKINUMAB
     Route: 065
  21. SECUKINUMAB [Suspect]
     Active Substance: SECUKINUMAB
     Route: 058
  22. SECUKINUMAB [Suspect]
     Active Substance: SECUKINUMAB
     Route: 058
  23. SECUKINUMAB [Suspect]
     Active Substance: SECUKINUMAB
     Route: 058
  24. SECUKINUMAB [Suspect]
     Active Substance: SECUKINUMAB
     Route: 058
  25. SECUKINUMAB [Suspect]
     Active Substance: SECUKINUMAB
     Route: 058
  26. SECUKINUMAB [Suspect]
     Active Substance: SECUKINUMAB
     Route: 058
  27. SECUKINUMAB [Suspect]
     Active Substance: SECUKINUMAB
     Route: 058
  28. SECUKINUMAB [Suspect]
     Active Substance: SECUKINUMAB
     Route: 058
  29. SECUKINUMAB [Suspect]
     Active Substance: SECUKINUMAB
     Route: 058
  30. SECUKINUMAB [Suspect]
     Active Substance: SECUKINUMAB
     Route: 058
  31. SECUKINUMAB [Suspect]
     Active Substance: SECUKINUMAB
     Route: 058
  32. SECUKINUMAB [Suspect]
     Active Substance: SECUKINUMAB
     Route: 058
  33. SECUKINUMAB [Suspect]
     Active Substance: SECUKINUMAB
     Route: 058
  34. SECUKINUMAB [Suspect]
     Active Substance: SECUKINUMAB
     Route: 058
  35. SECUKINUMAB [Suspect]
     Active Substance: SECUKINUMAB
     Route: 058
  36. SECUKINUMAB [Suspect]
     Active Substance: SECUKINUMAB
     Route: 058
  37. SECUKINUMAB [Suspect]
     Active Substance: SECUKINUMAB
     Route: 058
  38. SECUKINUMAB [Suspect]
     Active Substance: SECUKINUMAB
     Route: 058
  39. SECUKINUMAB [Suspect]
     Active Substance: SECUKINUMAB
     Route: 058
  40. SECUKINUMAB [Suspect]
     Active Substance: SECUKINUMAB
     Route: 058
  41. SECUKINUMAB [Suspect]
     Active Substance: SECUKINUMAB
     Route: 058
  42. SECUKINUMAB [Suspect]
     Active Substance: SECUKINUMAB
     Route: 058
  43. SECUKINUMAB [Suspect]
     Active Substance: SECUKINUMAB
     Route: 058
  44. SECUKINUMAB [Suspect]
     Active Substance: SECUKINUMAB
     Route: 058
  45. SECUKINUMAB [Suspect]
     Active Substance: SECUKINUMAB
     Route: 058
  46. SECUKINUMAB [Suspect]
     Active Substance: SECUKINUMAB
     Route: 058
  47. SECUKINUMAB [Suspect]
     Active Substance: SECUKINUMAB
     Route: 058
  48. SECUKINUMAB [Suspect]
     Active Substance: SECUKINUMAB
     Route: 058
  49. SECUKINUMAB [Suspect]
     Active Substance: SECUKINUMAB
     Route: 058
  50. LETROZOLE [Suspect]
     Active Substance: LETROZOLE
     Indication: Breast cancer
     Dosage: 2.5 MG, QD,  2.5 MILLIGRAM, QD/ 2.5 MG, QD (2.5 MG, DAILY)/ (DOSAGE1: UNIT=NOT AVAILABLE) / (CUMULAT
     Route: 048
     Dates: start: 20240221, end: 20240430
  51. ADALIMUMAB [Suspect]
     Active Substance: ADALIMUMAB
     Indication: Product used for unknown indication
     Route: 058
  52. ADALIMUMAB [Suspect]
     Active Substance: ADALIMUMAB
     Route: 065
  53. ADALIMUMAB [Suspect]
     Active Substance: ADALIMUMAB
     Route: 065
  54. ADALIMUMAB [Suspect]
     Active Substance: ADALIMUMAB
     Route: 058
  55. ADALIMUMAB [Suspect]
     Active Substance: ADALIMUMAB
     Route: 058
  56. ADALIMUMAB [Suspect]
     Active Substance: ADALIMUMAB
     Route: 058
  57. ADALIMUMAB [Suspect]
     Active Substance: ADALIMUMAB
     Route: 058
  58. ADALIMUMAB [Suspect]
     Active Substance: ADALIMUMAB
     Route: 058
  59. ADALIMUMAB [Suspect]
     Active Substance: ADALIMUMAB
     Route: 058
  60. ADALIMUMAB [Suspect]
     Active Substance: ADALIMUMAB
     Route: 058
  61. ADALIMUMAB [Suspect]
     Active Substance: ADALIMUMAB
     Route: 058
  62. ADALIMUMAB [Suspect]
     Active Substance: ADALIMUMAB
     Route: 058
  63. ADALIMUMAB [Suspect]
     Active Substance: ADALIMUMAB
     Route: 058
  64. ADALIMUMAB [Suspect]
     Active Substance: ADALIMUMAB
     Route: 058
  65. ADALIMUMAB [Suspect]
     Active Substance: ADALIMUMAB
     Route: 058
  66. ADALIMUMAB [Suspect]
     Active Substance: ADALIMUMAB
     Route: 058
  67. ADALIMUMAB [Suspect]
     Active Substance: ADALIMUMAB
     Route: 058
  68. ADALIMUMAB [Suspect]
     Active Substance: ADALIMUMAB
     Route: 065
  69. ADALIMUMAB [Suspect]
     Active Substance: ADALIMUMAB
     Route: 058
  70. ADALIMUMAB [Suspect]
     Active Substance: ADALIMUMAB
     Route: 058
  71. ADALIMUMAB [Suspect]
     Active Substance: ADALIMUMAB
     Route: 058
  72. ADALIMUMAB [Suspect]
     Active Substance: ADALIMUMAB
     Route: 058
  73. ADALIMUMAB [Suspect]
     Active Substance: ADALIMUMAB
     Route: 065
  74. ADALIMUMAB [Suspect]
     Active Substance: ADALIMUMAB
     Route: 065
  75. ADALIMUMAB [Suspect]
     Active Substance: ADALIMUMAB
     Route: 065
  76. ADALIMUMAB [Suspect]
     Active Substance: ADALIMUMAB
     Route: 065
  77. ADALIMUMAB [Suspect]
     Active Substance: ADALIMUMAB
     Route: 065
  78. ADALIMUMAB [Suspect]
     Active Substance: ADALIMUMAB
     Route: 065
  79. ADALIMUMAB [Suspect]
     Active Substance: ADALIMUMAB
     Route: 058
  80. ADALIMUMAB [Suspect]
     Active Substance: ADALIMUMAB
     Route: 058
  81. ADALIMUMAB [Suspect]
     Active Substance: ADALIMUMAB
     Route: 058
  82. ADALIMUMAB [Suspect]
     Active Substance: ADALIMUMAB
     Route: 058
  83. ADALIMUMAB [Suspect]
     Active Substance: ADALIMUMAB
     Route: 058
  84. ADALIMUMAB [Suspect]
     Active Substance: ADALIMUMAB
     Route: 058
  85. ADALIMUMAB [Suspect]
     Active Substance: ADALIMUMAB
     Route: 058
  86. ADALIMUMAB [Suspect]
     Active Substance: ADALIMUMAB
     Route: 058
  87. ADALIMUMAB [Suspect]
     Active Substance: ADALIMUMAB
     Route: 058
  88. ADALIMUMAB [Suspect]
     Active Substance: ADALIMUMAB
     Route: 058
  89. ADALIMUMAB [Suspect]
     Active Substance: ADALIMUMAB
     Route: 058
  90. ADALIMUMAB [Suspect]
     Active Substance: ADALIMUMAB
     Route: 058
  91. ADALIMUMAB [Suspect]
     Active Substance: ADALIMUMAB
     Route: 058
  92. ADALIMUMAB [Suspect]
     Active Substance: ADALIMUMAB
     Route: 058
  93. ADALIMUMAB [Suspect]
     Active Substance: ADALIMUMAB
     Route: 058
  94. ADALIMUMAB [Suspect]
     Active Substance: ADALIMUMAB
     Route: 058
  95. PALBOCICLIB [Suspect]
     Active Substance: PALBOCICLIB
     Indication: Breast cancer
     Route: 048
     Dates: start: 20240221, end: 20240423
  96. PALBOCICLIB [Suspect]
     Active Substance: PALBOCICLIB
     Route: 048
     Dates: start: 20240221, end: 20240423
  97. PALBOCICLIB [Suspect]
     Active Substance: PALBOCICLIB
     Route: 048
     Dates: start: 20240221, end: 20240423
  98. PALBOCICLIB [Suspect]
     Active Substance: PALBOCICLIB
     Route: 048
     Dates: start: 20240221, end: 20240423
  99. EDOXABAN TOSYLATE [Concomitant]
     Active Substance: EDOXABAN TOSYLATE
     Indication: Product used for unknown indication
     Route: 048
     Dates: start: 202401

REACTIONS (5)
  - Anaemia [Recovered/Resolved]
  - Systemic lupus erythematosus [Unknown]
  - White blood cell count decreased [Unknown]
  - Neoplasm progression [Unknown]
  - Metastases to bone [Unknown]

NARRATIVE: CASE EVENT DATE: 20240330
